FAERS Safety Report 15343968 (Version 1)
Quarter: 2018Q3

REPORT INFORMATION
  Report Type: Spontaneous
  Country: US (occurrence: US)
  Receive Date: 20180903
  Receipt Date: 20180903
  Transmission Date: 20181010
  Serious: No
  Sender: FDA-Public Use
  Company Number: US-GLAXOSMITHKLINE-US2018154131

PATIENT
  Age: 56 Year
  Sex: Female

DRUGS (1)
  1. NUCALA [Suspect]
     Active Substance: MEPOLIZUMAB
     Indication: ASTHMA
     Dosage: 100 MG, UNK
     Dates: start: 20180801

REACTIONS (8)
  - Rash [Unknown]
  - Pruritus [Unknown]
  - Increased appetite [Unknown]
  - Seborrhoeic dermatitis [Unknown]
  - Condition aggravated [Unknown]
  - Visual impairment [Unknown]
  - Therapeutic response unexpected [Unknown]
  - Nocturia [Unknown]

NARRATIVE: CASE EVENT DATE: 201808
